FAERS Safety Report 13905391 (Version 1)
Quarter: 2017Q3

REPORT INFORMATION
  Report Type: Spontaneous
  Country: US (occurrence: US)
  Receive Date: 20170825
  Receipt Date: 20170825
  Transmission Date: 20171127
  Serious: No
  Sender: FDA-Public Use
  Company Number: US-TEVA-705561USA

PATIENT
  Age: 87 Year
  Sex: Male

DRUGS (2)
  1. WARFARIN [Suspect]
     Active Substance: WARFARIN
     Route: 065
  2. ALENDRONATE SODIUM. [Suspect]
     Active Substance: ALENDRONATE SODIUM
     Route: 065

REACTIONS (4)
  - Asthenia [Unknown]
  - Musculoskeletal stiffness [Unknown]
  - Headache [Unknown]
  - Arthralgia [Unknown]
